FAERS Safety Report 8462687 (Version 3)
Quarter: 2014Q1

REPORT INFORMATION
  Report Type: Spontaneous
  Country: US (occurrence: US)
  Receive Date: 20120316
  Receipt Date: 20140303
  Transmission Date: 20141002
  Serious: Yes (Other)
  Sender: FDA-Public Use
  Company Number: US-JNJFOC-20120304327

PATIENT
  Age: 58 Year
  Sex: Female
  Weight: 53.52 kg

DRUGS (29)
  1. DURAGESIC [Suspect]
     Indication: SURGERY
     Route: 062
     Dates: start: 19930101
  2. DURAGESIC [Suspect]
     Indication: SURGERY
     Route: 062
     Dates: start: 1992
  3. DURAGESIC [Suspect]
     Indication: SURGERY
     Route: 062
     Dates: end: 2012
  4. DURAGESIC [Suspect]
     Indication: SURGERY
     Route: 062
     Dates: end: 2012
  5. DURAGESIC [Suspect]
     Indication: PAIN
     Route: 062
     Dates: start: 19930101
  6. DURAGESIC [Suspect]
     Indication: PAIN
     Route: 062
     Dates: end: 2012
  7. DURAGESIC [Suspect]
     Indication: PAIN
     Route: 062
     Dates: start: 1992
  8. DURAGESIC [Suspect]
     Indication: PAIN
     Route: 062
     Dates: end: 2012
  9. DURAGESIC [Suspect]
     Indication: SURGERY
     Route: 062
     Dates: start: 20120509
  10. DURAGESIC [Suspect]
     Indication: SURGERY
     Route: 062
     Dates: start: 2009, end: 20120301
  11. DURAGESIC [Suspect]
     Indication: SURGERY
     Route: 062
     Dates: start: 201204, end: 201204
  12. DURAGESIC [Suspect]
     Indication: SURGERY
     Route: 062
     Dates: start: 201204, end: 201204
  13. DURAGESIC [Suspect]
     Indication: PAIN
     Route: 062
     Dates: start: 201204, end: 201204
  14. DURAGESIC [Suspect]
     Indication: PAIN
     Route: 062
     Dates: start: 201204, end: 201204
  15. DURAGESIC [Suspect]
     Indication: PAIN
     Route: 062
     Dates: start: 20120509
  16. DURAGESIC [Suspect]
     Indication: PAIN
     Route: 062
     Dates: start: 2009, end: 20120301
  17. FENTANYL [Suspect]
     Indication: PRODUCT USED FOR UNKNOWN INDICATION
     Route: 062
  18. SOMA [Suspect]
     Indication: MUSCLE SPASMS
     Route: 048
     Dates: start: 1992
  19. SOMA [Suspect]
     Indication: MUSCLE SPASMS
     Route: 048
     Dates: start: 1993
  20. VICODIN [Suspect]
     Indication: PAIN
     Route: 048
     Dates: start: 1992, end: 1993
  21. METHADONE [Suspect]
     Indication: PAIN
     Route: 048
     Dates: start: 1993
  22. MORPHINE SULPHATE [Suspect]
     Indication: PAIN
     Route: 048
     Dates: start: 2011
  23. MORPHINE SULPHATE [Suspect]
     Indication: PAIN
     Route: 048
     Dates: start: 2009
  24. MYLAN FENTANYL TRANSDERMAL SYSTEM [Suspect]
     Indication: SURGERY
     Route: 062
  25. RELPAX [Concomitant]
     Indication: MIGRAINE
     Route: 065
  26. LEVOSALBUTAMOL [Concomitant]
     Indication: ASTHMA
     Route: 065
  27. BUTALBITAL [Concomitant]
     Indication: MIGRAINE
     Route: 065
  28. CALCIUM [Concomitant]
     Indication: NUTRITIONAL SUPPLEMENTATION
     Route: 065
  29. VITAMIN D [Concomitant]
     Indication: NUTRITIONAL SUPPLEMENTATION
     Route: 065

REACTIONS (13)
  - Spinal fusion surgery [Recovered/Resolved]
  - Loss of consciousness [Recovered/Resolved]
  - Withdrawal syndrome [Unknown]
  - Drug tolerance [Unknown]
  - Pain [Not Recovered/Not Resolved]
  - Wrong technique in drug usage process [Not Recovered/Not Resolved]
  - Migraine [Not Recovered/Not Resolved]
  - Drug ineffective [Not Recovered/Not Resolved]
  - Pain [Not Recovered/Not Resolved]
  - Neuralgia [Not Recovered/Not Resolved]
  - Tremor [Recovered/Resolved]
  - Malaise [Not Recovered/Not Resolved]
  - Breakthrough pain [Not Recovered/Not Resolved]
